FAERS Safety Report 6926390-3 (Version None)
Quarter: 2010Q3

REPORT INFORMATION
  Report Type: 
  Country: None (occurrence: None)
  Receive Date: 20100816
  Receipt Date: 20100803
  Transmission Date: 20110219
  Serious: Yes (Hospitalization)
  Sender: FDA-Public Use
  Company Number: US-BAYER-201030603NA

PATIENT
  Age: 37 Year
  Sex: Female
  Weight: 68 kg

DRUGS (3)
  1. YAZ [Suspect]
     Indication: ORAL CONTRACEPTION
     Route: 048
     Dates: start: 20061001, end: 20070201
  2. PROCHLORPERAZINE [Concomitant]
  3. VITAMINS [Concomitant]

REACTIONS (4)
  - CHOLECYSTECTOMY [None]
  - GASTROOESOPHAGEAL REFLUX DISEASE [None]
  - NAUSEA [None]
  - VOMITING [None]
